FAERS Safety Report 9808539 (Version 1)
Quarter: 2014Q1

REPORT INFORMATION
  Report Type: Spontaneous
  Country: US (occurrence: US)
  Receive Date: 20140110
  Receipt Date: 20140110
  Transmission Date: 20141002
  Serious: No
  Sender: FDA-Public Use
  Company Number: US-BAYER-2014-004255

PATIENT
  Age: 22 Year
  Sex: Female

DRUGS (2)
  1. MIRENA [Suspect]
     Indication: CONTRACEPTION
     Dosage: DAILY DOSE 20 ?G
     Dates: start: 20131204, end: 20131204
  2. MIRENA [Suspect]
     Indication: MENORRHAGIA

REACTIONS (2)
  - Device difficult to use [None]
  - Uterine spasm [None]
